FAERS Safety Report 7624528-6 (Version None)
Quarter: 2011Q3

REPORT INFORMATION
  Report Type: 
  Country: None (occurrence: None)
  Receive Date: 20110712
  Receipt Date: 20110701
  Transmission Date: 20111222
  Serious: Yes (Hospitalization)
  Sender: FDA-Public Use
  Company Number: NPIL/SEV/H/2011/24

PATIENT
  Age: 48 Year
  Sex: Male

DRUGS (1)
  1. SEVOFLURANE [Suspect]
     Indication: INTERVERTEBRAL DISC OPERATION
     Dosage: INHALATION
     Route: 055

REACTIONS (6)
  - DIARRHOEA HAEMORRHAGIC [None]
  - ASPARTATE AMINOTRANSFERASE INCREASED [None]
  - PROTEIN TOTAL DECREASED [None]
  - HAEMOGLOBIN DECREASED [None]
  - ALANINE AMINOTRANSFERASE INCREASED [None]
  - COLITIS ULCERATIVE [None]
